FAERS Safety Report 7206797-X (Version None)
Quarter: 2011Q1

REPORT INFORMATION
  Report Type: 
  Country: None (occurrence: None)
  Receive Date: 20110103
  Receipt Date: 20101229
  Transmission Date: 20110831
  Serious: Yes (Life-Threatening, Hospitalization)
  Sender: FDA-Public Use
  Company Number: DE-SANOFI-AVENTIS-2010SA067997

PATIENT
  Age: 43 Year
  Sex: Female
  Weight: 62 kg

DRUGS (2)
  1. LANTUS [Suspect]
     Route: 058
     Dates: start: 20000501
  2. HUMALOG [Concomitant]
     Dosage: DOSE BASED ON THE BLOOD GLUCOSE LEVEL
     Route: 058
     Dates: start: 20000501

REACTIONS (1)
  - BREAST CANCER [None]
